FAERS Safety Report 19667235 (Version 4)
Quarter: 2024Q2

REPORT INFORMATION
  Report Type: Spontaneous
  Country: IN (occurrence: IN)
  Receive Date: 20210806
  Receipt Date: 20240604
  Transmission Date: 20240716
  Serious: Yes (Life-Threatening, Hospitalization, Other)
  Sender: FDA-Public Use
  Company Number: IN-PFIZER INC-202100978481

PATIENT
  Age: 52 Year
  Sex: Male

DRUGS (11)
  1. MEROPENEM [Suspect]
     Active Substance: MEROPENEM
     Indication: Evidence based treatment
     Dosage: 1 G, STAT DOSE
     Route: 042
     Dates: start: 20201122
  2. MEROPENEM [Suspect]
     Active Substance: MEROPENEM
     Indication: Sepsis
     Dosage: 0.5 G, EVERY 8 HOURS
     Route: 042
     Dates: start: 20201122, end: 20201125
  3. MEROPENEM [Suspect]
     Active Substance: MEROPENEM
     Indication: Providencia infection
  4. MEROPENEM [Suspect]
     Active Substance: MEROPENEM
     Indication: Nosocomial infection
  5. PANTOPRAZOLE [Concomitant]
     Active Substance: PANTOPRAZOLE
     Dosage: 40 MG
  6. ONDANSETRON [Concomitant]
     Active Substance: ONDANSETRON
     Dosage: 4 MG
  7. NOREPINEPHRINE [Concomitant]
     Active Substance: NOREPINEPHRINE\NOREPINEPHRINE BITARTRATE
     Dosage: UNK (ACCORDING TO BLOOD PRESSURE)
  8. INSULIN NOS [Concomitant]
     Active Substance: INSULIN NOS
     Dosage: UNK (RAPID-ACTING, AS PER BLOOD SUGAR LEVELS)
  9. FEBUXOSTAT [Concomitant]
     Active Substance: FEBUXOSTAT
     Dosage: UNK
  10. DEXAMETHASONE [Concomitant]
     Active Substance: DEXAMETHASONE
     Dosage: UNK
  11. FUROSEMIDE [Concomitant]
     Active Substance: FUROSEMIDE
     Dosage: UNK

REACTIONS (6)
  - Immune thrombocytopenia [Recovered/Resolved]
  - Oral herpes [Recovered/Resolved]
  - Lymphopenia [Recovered/Resolved]
  - Leukopenia [Recovered/Resolved]
  - Gingival bleeding [Recovered/Resolved]
  - Thrombocytopenic purpura [Recovered/Resolved]

NARRATIVE: CASE EVENT DATE: 20201101
